FAERS Safety Report 8003881-8 (Version None)
Quarter: 2011Q4

REPORT INFORMATION
  Report Type: 
  Country: None (occurrence: None)
  Receive Date: 20111222
  Receipt Date: 20111212
  Transmission Date: 20120403
  Serious: Yes (Other)
  Sender: FDA-Public Use
  Company Number: US-BAYER-2011-120162

PATIENT

DRUGS (1)
  1. SODIUM BICARBONATE [Suspect]
     Indication: ABDOMINAL DISCOMFORT
     Dosage: UNK
     Route: 048
     Dates: start: 20110101

REACTIONS (6)
  - PAIN IN EXTREMITY [None]
  - ANXIETY [None]
  - DIZZINESS [None]
  - MYOCARDIAL INFARCTION [None]
  - CHEST PAIN [None]
  - MALAISE [None]
